FAERS Safety Report 17524791 (Version 1)
Quarter: 2020Q1

REPORT INFORMATION
  Report Type: Spontaneous
  Country: PL (occurrence: PL)
  Receive Date: 20200310
  Receipt Date: 20200310
  Transmission Date: 20200409
  Serious: Yes (Hospitalization, Other)
  Sender: FDA-Public Use
  Company Number: PL-INSUD PHARMA-2002PL00046

PATIENT

DRUGS (4)
  1. METOCLOPRAMIDE. [Interacting]
     Active Substance: METOCLOPRAMIDE
     Indication: GASTROOESOPHAGEAL REFLUX DISEASE
     Dosage: 30 MG/D
     Route: 048
  2. DULOXETINE. [Interacting]
     Active Substance: DULOXETINE
     Indication: GENERALISED ANXIETY DISORDER
     Dosage: 30 MG/D INITIAL DOSE
     Route: 065
  3. LANSOPRAZOLE. [Suspect]
     Active Substance: LANSOPRAZOLE
     Indication: GASTROOESOPHAGEAL REFLUX DISEASE
     Dosage: 15 MG/D
     Route: 048
  4. METOPROLOL. [Interacting]
     Active Substance: METOPROLOL
     Indication: SINUS TACHYCARDIA
     Dosage: 100 MG/D -  LONG TERM THERAPY
     Route: 065

REACTIONS (4)
  - Drug interaction [Unknown]
  - Bradycardia [Unknown]
  - Loss of consciousness [Unknown]
  - Syncope [Unknown]
